FAERS Safety Report 14196108 (Version 1)
Quarter: 2017Q4

REPORT INFORMATION
  Report Type: Spontaneous
  Country: US (occurrence: US)
  Receive Date: 20171116
  Receipt Date: 20171116
  Transmission Date: 20180321
  Serious: No
  Sender: FDA-Public Use
  Company Number: US-BAUSCH-BL-2017-023686

PATIENT
  Sex: Female

DRUGS (1)
  1. TETRABENAZINE. [Suspect]
     Active Substance: TETRABENAZINE
     Indication: CHOREA
     Route: 065
     Dates: start: 201705

REACTIONS (3)
  - Drug dose omission [Unknown]
  - Disease recurrence [Unknown]
  - Adverse event [Unknown]

NARRATIVE: CASE EVENT DATE: 2017
